FAERS Safety Report 18696721 (Version 23)
Quarter: 2022Q3

REPORT INFORMATION
  Report Type: Report from Study
  Country: GB (occurrence: GB)
  Receive Date: 20210104
  Receipt Date: 20220920
  Transmission Date: 20221027
  Serious: Yes (Hospitalization, Other)
  Sender: FDA-Public Use
  Company Number: GB-EMA-DD-20201214-SANDEVHP-120903

PATIENT
  Age: 57 Year
  Sex: Female

DRUGS (200)
  1. EXEMESTANE [Suspect]
     Active Substance: EXEMESTANE
     Indication: Breast cancer metastatic
     Dosage: 25 MILLIGRAM, QD
     Route: 048
     Dates: start: 20090921
  2. EXEMESTANE [Suspect]
     Active Substance: EXEMESTANE
     Dosage: 25 MILLIGRAM, QD
     Route: 048
     Dates: start: 20150328
  3. EXEMESTANE [Suspect]
     Active Substance: EXEMESTANE
     Dosage: 25 MG, QD (1/DAY)
     Route: 048
     Dates: start: 20151021
  4. EXEMESTANE [Suspect]
     Active Substance: EXEMESTANE
     Dosage: 25 MILLIGRAM, QD
     Route: 048
     Dates: start: 20150921
  5. EXEMESTANE [Suspect]
     Active Substance: EXEMESTANE
     Dosage: 1 DOSAGE FORM, ONCE A DAY(1 DOSAGE FORM, QD )
     Route: 048
     Dates: start: 201607, end: 20160921
  6. EXEMESTANE [Suspect]
     Active Substance: EXEMESTANE
     Dosage: 25 MILLIGRAM, QD
     Route: 048
  7. CAPECITABINE [Suspect]
     Active Substance: CAPECITABINE
     Indication: Breast cancer
     Dosage: 1650 MG (FROM 01-SEP-2015)
     Route: 048
     Dates: start: 20150901, end: 20160914
  8. CAPECITABINE [Suspect]
     Active Substance: CAPECITABINE
     Dosage: 3300 MILLIGRAM, QD (START DATE: 01-SEP-2016)
     Route: 048
     Dates: start: 20160901, end: 20160914
  9. CAPECITABINE [Suspect]
     Active Substance: CAPECITABINE
     Dosage: 1650 MILLIGRAM (START DATE: 01-SEP-2016)
     Route: 048
     Dates: start: 20160914
  10. TRASTUZUMAB [Suspect]
     Active Substance: TRASTUZUMAB
     Indication: Breast cancer metastatic
     Dosage: 462 MILLIGRAM, Q3W LOADING DOSE 3/WEEK
     Route: 042
     Dates: start: 20150506, end: 20150506
  11. TRASTUZUMAB [Suspect]
     Active Substance: TRASTUZUMAB
     Dosage: 357 MILLIGRAM, Q3W (MAINTENANCE DOSE, 22 CYCLES)
     Route: 042
     Dates: start: 20150527, end: 20160630
  12. TRASTUZUMAB [Suspect]
     Active Substance: TRASTUZUMAB
     Dosage: 1071 MG 357 MG EVERY 3 WEEKS LAST DOSE 30 JUN 2016
     Route: 042
     Dates: start: 20150527, end: 20160630
  13. TRASTUZUMAB [Suspect]
     Active Substance: TRASTUZUMAB
     Dosage: 357 MILLIGRAM, Q3W
     Route: 042
     Dates: start: 20170620
  14. TRASTUZUMAB [Suspect]
     Active Substance: TRASTUZUMAB
     Dosage: 462 MG, LOADING DOSE
     Route: 042
     Dates: start: 20150506, end: 20150506
  15. ANASTROZOLE [Suspect]
     Active Substance: ANASTROZOLE
     Indication: Breast cancer
     Dosage: 1 MG, QD (1/DAY)
     Route: 048
  16. ANASTROZOLE [Suspect]
     Active Substance: ANASTROZOLE
     Indication: Breast neoplasm
     Dosage: 1 MG, QD (1/DAY) (START DATE: 21-OCT-2015)
     Route: 048
     Dates: start: 20151021, end: 20171027
  17. ANASTROZOLE [Suspect]
     Active Substance: ANASTROZOLE
     Dosage: 1 DOSAGE FORM, ONCE A DAY(1 MG, QD (1/DAY)
     Route: 048
  18. ANASTROZOLE [Suspect]
     Active Substance: ANASTROZOLE
     Dosage: 1 MILLIGRAM, QD
     Route: 048
     Dates: start: 20151021
  19. DOCETAXEL [Suspect]
     Active Substance: DOCETAXEL
     Indication: Breast cancer
     Dosage: 130 MILLIGRAM, Q3W (6 CYCLES)
     Route: 042
     Dates: start: 20150507
  20. DOCETAXEL [Suspect]
     Active Substance: DOCETAXEL
     Dosage: 130 MILLIGRAM, Q3W (6 CYCLES)
     Route: 042
     Dates: start: 20150507, end: 20150903
  21. EXEMESTANE [Suspect]
     Active Substance: EXEMESTANE
     Indication: Breast cancer metastatic
     Dosage: 25 MILLIGRAM, QD
     Route: 048
     Dates: start: 20150328
  22. EXEMESTANE [Suspect]
     Active Substance: EXEMESTANE
     Indication: Breast cancer
     Dosage: 25 MILLIGRAM, QD
     Route: 048
     Dates: start: 20090921
  23. EXEMESTANE [Suspect]
     Active Substance: EXEMESTANE
     Dosage: 1 DOSAGE FORM, QD
     Route: 048
     Dates: start: 201607
  24. EXEMESTANE [Suspect]
     Active Substance: EXEMESTANE
     Dosage: 25 MILLIGRAM, QD
     Route: 048
     Dates: start: 20151021
  25. VINORELBINE [Suspect]
     Active Substance: VINORELBINE TARTRATE
     Indication: Breast cancer
     Dosage: 100 MILLIGRAM, QD, START DATE: 11-NOV-2016
     Route: 048
  26. VINORELBINE [Suspect]
     Active Substance: VINORELBINE TARTRATE
     Indication: Breast cancer metastatic
     Dosage: 100 MILLIGRAM, QD, START DATE: 28-OCT-2016
     Route: 048
     Dates: start: 20161028, end: 20161028
  27. VINORELBINE [Suspect]
     Active Substance: VINORELBINE TARTRATE
     Dosage: 100 MILLIGRAM, QD: START DATE: 01-SEP-2016
     Route: 048
     Dates: start: 20160901, end: 20160930
  28. VINORELBINE [Suspect]
     Active Substance: VINORELBINE TARTRATE
     Dosage: 100 MILLIGRAM, QD, START DATE: 01-SEP-2016
     Route: 048
     Dates: start: 20160901, end: 20161028
  29. VINORELBINE [Suspect]
     Active Substance: VINORELBINE TARTRATE
     Dosage: 100 MILLIGRAM, QD
     Route: 048
     Dates: start: 20161111
  30. PERTUZUMAB [Suspect]
     Active Substance: PERTUZUMAB
     Indication: Breast cancer
     Dosage: 2520 MILLIGRAM, QW(LOADING DOSE)
     Route: 042
     Dates: start: 20150507, end: 20150507
  31. PERTUZUMAB [Suspect]
     Active Substance: PERTUZUMAB
     Indication: Breast cancer metastatic
     Dosage: EVERY 3 WEEKS/420 MG (MAINTENANCE DOSE, 1 CYCLE)
     Route: 042
     Dates: start: 20150527, end: 20160630
  32. PERTUZUMAB [Suspect]
     Active Substance: PERTUZUMAB
     Dosage: 840 MILLIGRAM, 3 WEEK LOADING DOSE 1 CYCLE
     Route: 042
     Dates: start: 20150507, end: 20150507
  33. PERTUZUMAB [Suspect]
     Active Substance: PERTUZUMAB
     Dosage: 420 MILLIGRAM, EVERY WEEK
     Route: 042
     Dates: start: 20150527, end: 20160630
  34. PERTUZUMAB [Suspect]
     Active Substance: PERTUZUMAB
     Dosage: 357 MILLIGRAM,TWO WEEKS(357 MILLIGRAM, Q3W )
     Route: 042
     Dates: start: 20150527, end: 20160630
  35. PERTUZUMAB [Suspect]
     Active Substance: PERTUZUMAB
     Dosage: 2520 MG (LOADING DOSE)
     Route: 042
     Dates: start: 20150507, end: 20150507
  36. PERTUZUMAB [Suspect]
     Active Substance: PERTUZUMAB
     Dosage: 420 MILLIGRAM, 2 WEEKS
     Route: 042
     Dates: start: 20150527
  37. PERTUZUMAB [Suspect]
     Active Substance: PERTUZUMAB
     Dosage: 2520 MILLIGRAM, QD
     Route: 042
     Dates: start: 20150507, end: 20150507
  38. TAXOTERE [Suspect]
     Active Substance: DOCETAXEL
     Indication: Breast cancer
     Dosage: 130 MILLIGRAM, Q3W (DURATION 2880 HOURS)
     Route: 042
     Dates: start: 20150507, end: 20150903
  39. TAXOTERE [Suspect]
     Active Substance: DOCETAXEL
     Dosage: 357 MILLIGRAM, Q3W
     Route: 042
     Dates: start: 20150527, end: 20160630
  40. TAXOTERE [Suspect]
     Active Substance: DOCETAXEL
     Dosage: 100 MILLIGRAM, QD
     Route: 042
     Dates: start: 20160128, end: 20160128
  41. TAXOTERE [Suspect]
     Active Substance: DOCETAXEL
     Dosage: 100 MILLIGRAM, QD
     Route: 065
     Dates: start: 20161111
  42. TAXOTERE [Suspect]
     Active Substance: DOCETAXEL
     Dosage: 130 MILLIGRAM, Q3W
     Route: 065
     Dates: start: 20150903
  43. ADO-TRASTUZUMAB EMTANSINE [Suspect]
     Active Substance: ADO-TRASTUZUMAB EMTANSINE
     Indication: Breast cancer metastatic
     Dosage: 462 MILLIGRAM, Q3W
     Route: 042
     Dates: start: 20150506, end: 20150506
  44. ADO-TRASTUZUMAB EMTANSINE [Suspect]
     Active Substance: ADO-TRASTUZUMAB EMTANSINE
     Indication: Breast cancer
     Dosage: 357 MILLIGRAM, QW
     Route: 042
     Dates: start: 20150527, end: 20160630
  45. ADO-TRASTUZUMAB EMTANSINE [Suspect]
     Active Substance: ADO-TRASTUZUMAB EMTANSINE
     Dosage: 224 MILLIGRAM, Q3W
     Route: 042
     Dates: start: 20170620, end: 20170830
  46. ADO-TRASTUZUMAB EMTANSINE [Suspect]
     Active Substance: ADO-TRASTUZUMAB EMTANSINE
     Dosage: 1 DOSAGE FORM, QW
     Route: 042
     Dates: start: 20170120, end: 20170830
  47. ADO-TRASTUZUMAB EMTANSINE [Suspect]
     Active Substance: ADO-TRASTUZUMAB EMTANSINE
     Dosage: 224 MILLIGRAM, Q3W
     Route: 042
     Dates: start: 20170120
  48. ADO-TRASTUZUMAB EMTANSINE [Suspect]
     Active Substance: ADO-TRASTUZUMAB EMTANSINE
     Dosage: 1071 MG, QW 357 MG Q3W LAST DOSE 30 JUN 2016
     Route: 042
     Dates: start: 20150527
  49. ADO-TRASTUZUMAB EMTANSINE [Suspect]
     Active Substance: ADO-TRASTUZUMAB EMTANSINE
     Dosage: 357 MILLIGRAM,TWO WEEKS(357 MILLIGRAM, Q3W )
     Route: 042
     Dates: start: 20170620
  50. ADO-TRASTUZUMAB EMTANSINE [Suspect]
     Active Substance: ADO-TRASTUZUMAB EMTANSINE
     Dosage: 320 MILLIGRAM
     Route: 065
  51. ADO-TRASTUZUMAB EMTANSINE [Suspect]
     Active Substance: ADO-TRASTUZUMAB EMTANSINE
     Dosage: 224 MILLIGRAM, Q3W (224 MG, TIW )
     Route: 042
     Dates: start: 20170620, end: 20170630
  52. ADO-TRASTUZUMAB EMTANSINE [Suspect]
     Active Substance: ADO-TRASTUZUMAB EMTANSINE
     Dosage: 224 MILLIGRAM, Q3W
     Route: 042
     Dates: start: 20170620, end: 20170630
  53. NAVELBINE [Suspect]
     Active Substance: VINORELBINE TARTRATE
     Indication: Breast cancer
     Dosage: UNK
     Route: 065
  54. NAVELBINE [Suspect]
     Active Substance: VINORELBINE TARTRATE
     Indication: Breast cancer metastatic
     Dosage: 100 MILLIGRAM, QD (STAR DATE: 01-SEP-2016 )
     Route: 048
     Dates: end: 20160930
  55. NAVELBINE [Suspect]
     Active Substance: VINORELBINE TARTRATE
     Dosage: 100 MILLIGRAM, QD (START DATE: 11-NOV-2016)
     Route: 048
  56. NAVELBINE [Suspect]
     Active Substance: VINORELBINE TARTRATE
     Dosage: 100 MILLIGRAM, QD (START DATE: 01-SEP-2016 )
     Route: 048
     Dates: end: 20161028
  57. NAVELBINE [Suspect]
     Active Substance: VINORELBINE TARTRATE
     Dosage: 100 MILLIGRAM, QD (START DATE: 28-OCT-2016)
     Route: 048
     Dates: end: 20161028
  58. NAVELBINE [Suspect]
     Active Substance: VINORELBINE TARTRATE
     Dosage: 100 MILLIGRAM (START DATE: 01-SEP-2016)
     Route: 048
     Dates: end: 20170111
  59. HERCEPTIN [Suspect]
     Active Substance: TRASTUZUMAB
     Indication: Breast cancer
     Dosage: 462 MG (LOADING DOSE 3/WEEK (CV))
     Route: 042
     Dates: start: 20150506, end: 20150506
  60. HERCEPTIN [Suspect]
     Active Substance: TRASTUZUMAB
     Dosage: 1071 MG QW (357 MG, Q3W LAST DOSE 30 JUN 2016)
     Route: 042
     Dates: start: 20150527, end: 20160630
  61. DOCETAXEL [Suspect]
     Active Substance: DOCETAXEL
     Indication: Breast cancer
     Dosage: 25 MILLIGRAM, QD
     Route: 048
     Dates: start: 20150328
  62. DOCETAXEL [Suspect]
     Active Substance: DOCETAXEL
     Dosage: 100 MILLIGRAM, QD
     Route: 048
     Dates: start: 20161028, end: 20161028
  63. DOCETAXEL [Suspect]
     Active Substance: DOCETAXEL
     Dosage: 25 MILLIGRAM, QD
     Route: 048
     Dates: start: 20151021
  64. DOCETAXEL [Suspect]
     Active Substance: DOCETAXEL
     Dosage: 100 MILLIGRAM, QD
     Route: 048
     Dates: start: 20161111
  65. DOCETAXEL [Suspect]
     Active Substance: DOCETAXEL
     Dosage: 25 MILLIGRAM, QD
     Route: 048
     Dates: start: 20090921
  66. DOCETAXEL [Suspect]
     Active Substance: DOCETAXEL
     Dosage: 100 MILLIGRAM, QD
     Route: 048
     Dates: start: 20160901, end: 20160930
  67. PERJETA [Suspect]
     Active Substance: PERTUZUMAB
     Indication: Breast cancer
     Dosage: 420 MILLIGRAM, Q3W
     Route: 042
     Dates: start: 20150527
  68. PERJETA [Suspect]
     Active Substance: PERTUZUMAB
     Indication: Breast cancer
     Dosage: 420 MILLIGRAM, Q3W
     Route: 042
     Dates: start: 20150527, end: 20160630
  69. PERJETA [Suspect]
     Active Substance: PERTUZUMAB
     Dosage: 420 MILLIGRAM, Q3W
     Route: 042
     Dates: start: 20160630
  70. PERJETA [Suspect]
     Active Substance: PERTUZUMAB
     Dosage: 840 MILLIGRAM, Q3W
     Route: 042
     Dates: start: 20150507, end: 20150507
  71. PERJETA [Suspect]
     Active Substance: PERTUZUMAB
     Dosage: 2520 MILLIGRAM
     Route: 042
     Dates: start: 20150507, end: 20150507
  72. XELODA [Suspect]
     Active Substance: CAPECITABINE
     Indication: Breast cancer
     Dosage: 3300 MILLIGRAM, START DATE: 01-SEP-2016
     Route: 048
     Dates: end: 20160914
  73. XELODA [Suspect]
     Active Substance: CAPECITABINE
     Dosage: 3300 MILLIGRAM, QD
     Route: 048
  74. ARIMIDEX [Suspect]
     Active Substance: ANASTROZOLE
     Indication: Breast cancer metastatic
     Dosage: 1 MILLIGRAM, QD, START DATE: 21-OCT-2015
     Route: 048
     Dates: end: 20171027
  75. DEXAMETHASONE [Concomitant]
     Active Substance: DEXAMETHASONE
     Indication: Premedication
     Dosage: 1 DOSAGE FORM, QD
     Route: 048
     Dates: start: 20150506, end: 20150717
  76. DEXAMETHASONE [Concomitant]
     Active Substance: DEXAMETHASONE
     Dosage: 2 MILLIGRAM
     Route: 065
     Dates: start: 20150504, end: 20150904
  77. DEXAMETHASONE [Concomitant]
     Active Substance: DEXAMETHASONE
     Dosage: UNK, UNKNOWN
     Route: 048
     Dates: start: 20160713, end: 201607
  78. DEXAMETHASONE [Concomitant]
     Active Substance: DEXAMETHASONE
     Dosage: UNK
     Route: 048
     Dates: start: 20150506, end: 20150717
  79. DEXAMETHASONE [Concomitant]
     Active Substance: DEXAMETHASONE
     Dosage: 1 DOSAGE FORM, QD, 1 DF, QD (1/DAY)
     Route: 048
     Dates: start: 20161123, end: 20161130
  80. DEXAMETHASONE [Concomitant]
     Active Substance: DEXAMETHASONE
     Dosage: 1 DOSAGE FORM, QD
     Route: 048
     Dates: start: 20170216, end: 20170830
  81. DEXAMETHASONE [Concomitant]
     Active Substance: DEXAMETHASONE
     Dosage: 2 MILLIGRAM
     Route: 048
     Dates: start: 20160713, end: 20161004
  82. DEXAMETHASONE [Concomitant]
     Active Substance: DEXAMETHASONE
     Dosage: 2 MILLIGRAM
     Route: 048
     Dates: start: 20161004, end: 20161123
  83. DEXAMETHASONE [Concomitant]
     Active Substance: DEXAMETHASONE
     Dosage: 1 DOSAGE FORM, QD
     Route: 048
     Dates: start: 201607, end: 20160921
  84. DEXAMETHASONE [Concomitant]
     Active Substance: DEXAMETHASONE
     Dosage: 8 MILLIGRAM
     Route: 048
     Dates: start: 20150504, end: 20150904
  85. DEXAMETHASONE [Concomitant]
     Active Substance: DEXAMETHASONE
     Dosage: 1 DOSAGE FORM, QD
     Route: 048
     Dates: start: 20161130, end: 20161201
  86. DEXAMETHASONE [Concomitant]
     Active Substance: DEXAMETHASONE
     Dosage: 1 DOSAGE FORM, QD
     Route: 048
     Dates: start: 201612, end: 20170510
  87. DEXAMETHASONE [Concomitant]
     Active Substance: DEXAMETHASONE
     Dosage: 2 DOSAGE FORM
     Route: 048
     Dates: start: 201612, end: 201612
  88. DEXAMETHASONE [Concomitant]
     Active Substance: DEXAMETHASONE
     Dosage: 2 MILLIGRAM
     Route: 065
     Dates: start: 20161014
  89. DEXAMETHASONE [Concomitant]
     Active Substance: DEXAMETHASONE
     Dosage: 1 DOSAGE FORM
     Route: 048
     Dates: start: 20161004, end: 20161123
  90. DEXAMETHASONE [Concomitant]
     Active Substance: DEXAMETHASONE
     Dosage: 2 MILLIGRAM, QD(ONCE A DAY)
     Route: 048
     Dates: start: 201612, end: 20170510
  91. DEXAMETHASONE [Concomitant]
     Active Substance: DEXAMETHASONE
     Dosage: 8 MILLIGRAM, QD
     Route: 048
     Dates: start: 20161130, end: 20161201
  92. DEXAMETHASONE [Concomitant]
     Active Substance: DEXAMETHASONE
     Dosage: 1 DOSAGE FORM, QD, 1 DF, QD (1/DAY)
     Route: 048
     Dates: start: 20160713, end: 201607
  93. LEVETIRACETAM [Concomitant]
     Active Substance: LEVETIRACETAM
     Indication: Epilepsy
     Dosage: 250 MG, UNK, START DATE:27-JUL-2016
     Route: 048
     Dates: end: 20171027
  94. LEVETIRACETAM [Concomitant]
     Active Substance: LEVETIRACETAM
     Indication: Muscle twitching
     Dosage: 1 DOSAGE FORM, BID, START DATE: 11-AUG-2016
     Route: 048
     Dates: end: 20161027
  95. LEVETIRACETAM [Concomitant]
     Active Substance: LEVETIRACETAM
     Dosage: 1 DOSAGE FORM, BID(2 DF) START DATE:27-JUL-2016
     Route: 048
     Dates: end: 20160810
  96. LEVETIRACETAM [Concomitant]
     Active Substance: LEVETIRACETAM
     Dosage: 250 MILLIGRAM, START DATE: 27-JUL-2016
     Route: 048
     Dates: end: 20161027
  97. LEVETIRACETAM [Concomitant]
     Active Substance: LEVETIRACETAM
     Dosage: UNK, BID, START DATE: 11-AUG-2016
     Route: 048
     Dates: end: 20161027
  98. LEVETIRACETAM [Concomitant]
     Active Substance: LEVETIRACETAM
     Dosage: UNK, ONCE A DAY, START DATE: 11-AUG-2016
     Route: 048
     Dates: end: 20161027
  99. LEVETIRACETAM [Concomitant]
     Active Substance: LEVETIRACETAM
     Dosage: UNK UNK, ONCE A DAY, START DATE: 27-JUL-2016
     Route: 048
     Dates: end: 20160810
  100. CODEINE [Concomitant]
     Active Substance: CODEINE
     Indication: Diarrhoea
     Dosage: SUBSEQUENT DOSE RECEIVED ON 18/NOV/2016
     Route: 048
     Dates: start: 20150506, end: 2016
  101. CODEINE [Concomitant]
     Active Substance: CODEINE
     Indication: Palpitations
     Dosage: UNK, UNKNOWN
     Route: 048
     Dates: start: 20150603, end: 2015
  102. CODEINE [Concomitant]
     Active Substance: CODEINE
     Indication: Premedication
     Dosage: UNK
     Route: 048
     Dates: start: 20150603, end: 20150715
  103. CODEINE [Concomitant]
     Active Substance: CODEINE
     Indication: Epilepsy
     Dosage: UNK
     Route: 048
     Dates: start: 20160811, end: 20161027
  104. CODEINE [Concomitant]
     Active Substance: CODEINE
     Indication: Headache
     Dosage: BID (2/DAY)
     Route: 048
     Dates: start: 20160727, end: 20160810
  105. CODEINE [Concomitant]
     Active Substance: CODEINE
     Indication: Urinary tract infection
     Dosage: 50 MILLIGRAM
     Route: 048
     Dates: start: 20160602, end: 20171027
  106. CODEINE [Concomitant]
     Active Substance: CODEINE
     Indication: Constipation
     Dosage: 2 MILLIGRAM, QD
     Route: 048
     Dates: start: 201612, end: 20170510
  107. CODEINE [Concomitant]
     Active Substance: CODEINE
     Indication: Cough
     Dosage: 200 MILLIGRAM
     Route: 048
     Dates: start: 20161123, end: 20171027
  108. CODEINE [Concomitant]
     Active Substance: CODEINE
     Dosage: 1 DF, QD (1/DAY)
     Route: 048
     Dates: start: 20161123, end: 20161130
  109. CODEINE [Concomitant]
     Active Substance: CODEINE
     Dosage: UNK
     Route: 048
     Dates: start: 20150508, end: 20150904
  110. CODEINE [Concomitant]
     Active Substance: CODEINE
     Dosage: UNK
     Route: 048
     Dates: start: 20170216, end: 20170830
  111. CODEINE [Concomitant]
     Active Substance: CODEINE
     Dosage: UNK
     Route: 048
     Dates: start: 20171004, end: 20171004
  112. CODEINE [Concomitant]
     Active Substance: CODEINE
     Dosage: 1 DOSAGE FORM, QD
     Route: 048
     Dates: start: 20160713, end: 201607
  113. CODEINE [Concomitant]
     Active Substance: CODEINE
     Dosage: UNK
     Route: 048
     Dates: start: 20161111, end: 2016
  114. CODEINE [Concomitant]
     Active Substance: CODEINE
     Dosage: UNK
     Route: 048
     Dates: start: 20170209, end: 20170216
  115. CODEINE [Concomitant]
     Active Substance: CODEINE
     Dosage: UNK
     Route: 048
     Dates: start: 20160629, end: 20171027
  116. CODEINE [Concomitant]
     Active Substance: CODEINE
     Dosage: 250 MILLIGRAM
     Route: 048
     Dates: start: 20160727, end: 20171027
  117. CODEINE [Concomitant]
     Active Substance: CODEINE
     Dosage: 1 DOSAGE FORM, QD
     Route: 048
     Dates: start: 20161004, end: 20161123
  118. CODEINE [Concomitant]
     Active Substance: CODEINE
     Dosage: 2 MILLIGRAM, QD
     Route: 048
     Dates: start: 20150504, end: 20150904
  119. CODEINE [Concomitant]
     Active Substance: CODEINE
     Dosage: 1 TABLET
     Route: 048
     Dates: start: 20170201
  120. CODEINE [Concomitant]
     Active Substance: CODEINE
     Dosage: 1 TABLET
     Route: 048
     Dates: start: 20161221, end: 20170327
  121. CODEINE [Concomitant]
     Active Substance: CODEINE
     Dosage: 5 MG, QD (1/DAY)
     Route: 048
     Dates: start: 20160308, end: 20160602
  122. CODEINE [Concomitant]
     Active Substance: CODEINE
     Dosage: 2 MILLIGRAM, QD
     Route: 048
     Dates: start: 201612, end: 201612
  123. CODEINE [Concomitant]
     Active Substance: CODEINE
     Dosage: UNK
     Route: 065
  124. CODEINE [Concomitant]
     Active Substance: CODEINE
     Dosage: 1 DF, QD (1/DAY)
     Route: 048
     Dates: start: 20150506, end: 20150717
  125. CODEINE [Concomitant]
     Active Substance: CODEINE
     Dosage: 2 DOSAGE FORM, QD
     Route: 048
     Dates: start: 20170815, end: 2017
  126. CODEINE [Concomitant]
     Active Substance: CODEINE
     Dosage: SUBSEQUENT DOSE RECEIVED ON 18/NOV/2016
     Route: 048
     Dates: start: 20170301, end: 2017
  127. CODEINE [Concomitant]
     Active Substance: CODEINE
     Dosage: 8 MILLIGRAM, QD
     Route: 048
     Dates: start: 20161130, end: 20161201
  128. CODEINE [Concomitant]
     Active Substance: CODEINE
     Dosage: 1 DF, QD (1/DAY)
     Route: 048
     Dates: start: 201607, end: 20160921
  129. CODEINE [Concomitant]
     Active Substance: CODEINE
     Dosage: 60 MILLIGRAM
     Route: 065
     Dates: start: 20150603, end: 20150715
  130. FLUCONAZOLE [Concomitant]
     Active Substance: FLUCONAZOLE
     Indication: Product used for unknown indication
     Dosage: UNK, UNKNOWN
     Route: 048
     Dates: start: 20171004, end: 20171004
  131. COCODAMOL [Concomitant]
     Active Substance: ACETAMINOPHEN\CODEINE PHOSPHATE
     Indication: Headache
     Dosage: 500 MILLIGRAM
     Route: 048
     Dates: end: 20171027
  132. COCODAMOL [Concomitant]
     Active Substance: ACETAMINOPHEN\CODEINE PHOSPHATE
     Dosage: UNK, START DATE: 29-SEP-2016
     Route: 048
     Dates: end: 20171027
  133. KEPPRA [Concomitant]
     Active Substance: LEVETIRACETAM
     Indication: Muscle twitching
     Dosage: 250 MILLIGRAM, BID, START DATE 27-JUL-2016
     Route: 048
     Dates: end: 20160810
  134. KEPPRA [Concomitant]
     Active Substance: LEVETIRACETAM
     Dosage: UNK, BID, START DATE: 11-AUG-2016
     Route: 048
     Dates: end: 20161027
  135. KEPPRA [Concomitant]
     Active Substance: LEVETIRACETAM
     Dosage: UNK, BID, START DATE:27-JUL-2016
     Route: 048
     Dates: end: 20171027
  136. BISOPROLOL [Concomitant]
     Active Substance: BISOPROLOL
     Indication: Palpitations
     Dosage: UNK, START DATE: 02-JUN-2016
     Route: 065
     Dates: end: 20171027
  137. BISOPROLOL [Concomitant]
     Active Substance: BISOPROLOL
     Dosage: 1.25 MILLIGRAM, START DATE: 02-JUN-2016
     Route: 048
     Dates: end: 20171027
  138. BISOPROLOL [Concomitant]
     Active Substance: BISOPROLOL
     Dosage: 1.25 MILLIGRAM, START DATE: 02-JUN-2016
     Route: 048
  139. METOCLOPRAMIDE [Concomitant]
     Active Substance: METOCLOPRAMIDE
     Indication: Product used for unknown indication
     Dosage: 2 DOSAGE FORM, QD
     Route: 048
     Dates: start: 20150506, end: 20150903
  140. METOCLOPRAMIDE [Concomitant]
     Active Substance: METOCLOPRAMIDE
     Dosage: SUBSEQUENT DOSE RECEIVED ON 18/NOV/2016
     Route: 048
     Dates: start: 20150506, end: 2016
  141. METOCLOPRAMIDE [Concomitant]
     Active Substance: METOCLOPRAMIDE
     Dosage: UNK UNK, BID
     Route: 048
     Dates: start: 20170301, end: 2017
  142. METOCLOPRAMIDE [Concomitant]
     Active Substance: METOCLOPRAMIDE
     Dosage: 2 DOSAGE FORM, QD, 2 DF, QD (1/DAY)
     Route: 048
     Dates: start: 20170815, end: 2017
  143. METOCLOPRAMIDE [Concomitant]
     Active Substance: METOCLOPRAMIDE
     Dosage: 2 DOSAGE FORM, QD
     Route: 048
     Dates: start: 20170301, end: 2017
  144. METOCLOPRAMIDE [Concomitant]
     Active Substance: METOCLOPRAMIDE
     Dosage: UNK
     Route: 048
     Dates: start: 20170815, end: 2017
  145. METOCLOPRAMIDE [Concomitant]
     Active Substance: METOCLOPRAMIDE
     Dosage: SUBSEQUENT DOSE RECEIVED ON 18/NOV/2016
     Route: 048
     Dates: start: 20170301, end: 2017
  146. METOCLOPRAMIDE [Concomitant]
     Active Substance: METOCLOPRAMIDE
     Dosage: UNK
     Route: 048
     Dates: start: 20161118
  147. METOCLOPRAMIDE [Concomitant]
     Active Substance: METOCLOPRAMIDE
     Dosage: UNK UNK, BID
     Route: 048
     Dates: start: 20150506, end: 20150903
  148. METOCLOPRAMIDE [Concomitant]
     Active Substance: METOCLOPRAMIDE
     Dosage: 2 DOSAGE FORM, QD
     Route: 048
     Dates: start: 20150506, end: 2017
  149. METOCLOPRAMIDE [Concomitant]
     Active Substance: METOCLOPRAMIDE
     Indication: Product used for unknown indication
     Dosage: 1 DOSAGE FORM, BID
     Route: 042
     Dates: start: 20150506, end: 20150903
  150. APREPITANT [Concomitant]
     Active Substance: APREPITANT
     Indication: Prophylaxis
     Dosage: UNK, START DATE: 27-MAY-2015
     Route: 065
     Dates: end: 20150905
  151. APREPITANT [Concomitant]
     Active Substance: APREPITANT
     Dosage: UNK
     Route: 065
  152. BECLOMETHASONE DIPROPIONATE [Concomitant]
     Active Substance: BECLOMETHASONE DIPROPIONATE
     Indication: Wheezing
     Dosage: 400 MILLIGRAM
     Route: 065
     Dates: end: 20160108
  153. PEGFILGRASTIM [Concomitant]
     Active Substance: PEGFILGRASTIM
     Indication: Product used for unknown indication
     Dosage: SUBSEQUENT DOSE RECEIVED ON 18/NOV/2016
     Route: 058
     Dates: start: 20150506, end: 20150903
  154. PEGFILGRASTIM [Concomitant]
     Active Substance: PEGFILGRASTIM
     Dosage: UNK
     Route: 058
     Dates: start: 20150506, end: 20150903
  155. QUININE SULFATE [Concomitant]
     Active Substance: QUININE SULFATE
     Indication: Muscle spasms
     Dosage: 200 MILLIGRAM, START DATE: 23-NOV-2016
     Route: 048
     Dates: end: 20171027
  156. NITROFURANTOIN [Concomitant]
     Active Substance: NITROFURANTOIN
     Indication: Product used for unknown indication
     Dosage: UNK, START DATE: 21-JUN-2017
     Route: 048
     Dates: end: 20170623
  157. RAMIPRIL [Concomitant]
     Active Substance: RAMIPRIL
     Indication: Palpitations
     Dosage: UNK
     Route: 065
  158. RAMIPRIL [Concomitant]
     Active Substance: RAMIPRIL
     Indication: Cough
     Dosage: 5 MG, QD (1/DAY), START DATE: 08-MAR-2016
     Route: 048
     Dates: end: 20160602
  159. RAMIPRIL [Concomitant]
     Active Substance: RAMIPRIL
     Dosage: 435 MILLIGRAM
     Route: 048
  160. RAMIPRIL [Concomitant]
     Active Substance: RAMIPRIL
     Dosage: 5 MILLIGRAM, QD, START DATE: 08-MAR-2016
     Route: 048
     Dates: end: 20161005
  161. ACETAMINOPHEN [Concomitant]
     Active Substance: ACETAMINOPHEN
     Indication: Headache
     Dosage: 500 MILLIGRAM, START DATE: 29-JUN-2016
     Route: 048
     Dates: end: 20171027
  162. ACETAMINOPHEN [Concomitant]
     Active Substance: ACETAMINOPHEN
     Dosage: UNK, START DATE: 29-JUN-2016
     Route: 048
     Dates: end: 20171027
  163. CYCLIZINE [Concomitant]
     Active Substance: CYCLIZINE
     Indication: Prophylaxis
     Dosage: 150 MG, QD (1/DAY), START DATE: 03-JUN-2015
     Route: 048
     Dates: end: 20150715
  164. CYCLIZINE [Concomitant]
     Active Substance: CYCLIZINE
     Dosage: 50 MILLIGRAM, PRN, START DATE: 03-JUN-2015
     Route: 048
     Dates: end: 20150715
  165. TRIMETHOPRIM [Concomitant]
     Active Substance: TRIMETHOPRIM
     Indication: Urinary tract infection
     Dosage: UNK, START DATE: 09-FEB-2017
     Route: 048
     Dates: end: 20170216
  166. SENNA [Concomitant]
     Active Substance: SENNA LEAF\SENNOSIDES\SENNOSIDES A AND B
     Indication: Constipation
     Dosage: 15 MILLIGRAM, START DATE: 21-DEC-2016
     Route: 048
     Dates: end: 20170327
  167. SENNA [Concomitant]
     Active Substance: SENNA LEAF\SENNOSIDES\SENNOSIDES A AND B
     Dosage: UNK, START DATE: 21-DEC-2016
     Route: 048
     Dates: end: 20170327
  168. AMOXICILLIN [Concomitant]
     Active Substance: AMOXICILLIN
     Indication: Oropharyngeal pain
     Dosage: 9 DF, TID, QD(3 DF)START DATE: 04-NOV-2015
     Route: 048
     Dates: end: 20151111
  169. LACTULOSE [Concomitant]
     Active Substance: LACTULOSE
     Indication: Neuralgia
     Dosage: UNK, START DATE: 21-DEC-2016
     Route: 048
     Dates: end: 20171021
  170. LACTULOSE [Concomitant]
     Active Substance: LACTULOSE
     Indication: Constipation
     Dosage: UNK UNK, MONTHLY, START DATE: 01-FEB-2017
     Route: 048
     Dates: end: 201703
  171. LACTULOSE [Concomitant]
     Active Substance: LACTULOSE
     Dosage: 15 MILLILITER, START DATE: 21-DEC-2016
     Route: 048
     Dates: end: 20171021
  172. LACTULOSE [Concomitant]
     Active Substance: LACTULOSE
     Dosage: UNK, START DATE: MAR-2016
     Route: 048
     Dates: end: 20171021
  173. LACTULOSE [Concomitant]
     Active Substance: LACTULOSE
     Dosage: UNK, MONTHLY
     Route: 048
  174. IBUPROFEN [Concomitant]
     Active Substance: IBUPROFEN
     Indication: Headache
     Dosage: 1 DOSAGE FORM, QD1 TABLET START DATE: 01-FEB-2017
     Route: 048
  175. SPIRONOLACTONE [Concomitant]
     Active Substance: SPIRONOLACTONE
     Indication: Palpitations
     Dosage: UNK, START DATE: 02-JUN-2016
     Route: 048
     Dates: end: 20171027
  176. SPIRONOLACTONE [Concomitant]
     Active Substance: SPIRONOLACTONE
     Dosage: 50 MILLIGRAM, START DATE: 02-JUN-2016
     Route: 048
     Dates: end: 20171027
  177. ONDANSETRON [Concomitant]
     Active Substance: ONDANSETRON
     Indication: Product used for unknown indication
     Dosage: UNK
     Route: 048
     Dates: start: 20150508, end: 20150904
  178. ONDANSETRON [Concomitant]
     Active Substance: ONDANSETRON
     Dosage: UNK, START DATE: 11-NOV-2016
     Route: 048
     Dates: end: 2016
  179. LANSOPRAZOLE [Concomitant]
     Active Substance: LANSOPRAZOLE
     Indication: Prophylaxis
     Dosage: UNK, UNKNOWN
     Route: 048
     Dates: start: 20150504, end: 20171027
  180. CALCIUM GLUCONATE [Concomitant]
     Active Substance: CALCIUM GLUCONATE
     Indication: Product used for unknown indication
     Dosage: UNK, UNKNOWN
     Route: 065
     Dates: end: 20170201
  181. VENTOLIN [Concomitant]
     Active Substance: ALBUTEROL SULFATE
     Indication: Wheezing
     Dosage: UNK, START DATE: 21-JUN-2017
     Route: 065
     Dates: end: 2017
  182. CALCIUM CARBONATE\CHOLECALCIFEROL [Concomitant]
     Active Substance: CALCIUM CARBONATE\CHOLECALCIFEROL
     Indication: Headache
     Dosage: UNK, UNKNOWN
     Route: 048
     Dates: end: 20171027
  183. CALCIUM CARBONATE\CHOLECALCIFEROL [Concomitant]
     Active Substance: CALCIUM CARBONATE\CHOLECALCIFEROL
     Dosage: UNK
     Route: 048
  184. CASSIA ACUTIFOLIA [Concomitant]
     Indication: Constipation
     Dosage: UNK, START DATE: 21-DEC-2016
     Route: 048
     Dates: end: 20170327
  185. LOSARTAN [Concomitant]
     Active Substance: LOSARTAN
     Indication: Palpitations
     Dosage: 50 MG, UNK
     Route: 048
  186. LOSARTAN [Concomitant]
     Active Substance: LOSARTAN
     Dosage: 50 MG, UNK, START DATE: 02-JUN-2016
     Route: 048
     Dates: end: 20171027
  187. AMITRIPTYLINE [Concomitant]
     Active Substance: AMITRIPTYLINE
     Indication: Product used for unknown indication
     Dosage: 10 MILLIGRAM, QD, START DATE: MAR-2016
     Route: 048
  188. CALAMINE [Concomitant]
     Active Substance: CALAMINE\FERRIC OXIDE RED\ZINC OXIDE
     Indication: Product used for unknown indication
     Dosage: UNK, PRN 1 APPLICATION, AS NEEDED
     Route: 061
     Dates: start: 20150915
  189. CODEINE PHOSPHATE [Concomitant]
     Active Substance: CODEINE PHOSPHATE
     Indication: Product used for unknown indication
     Dosage: 60 MG, QD (AS NEEDED) START DATE: 03-JUN-2015
     Route: 048
     Dates: end: 20150715
  190. CODEINE PHOSPHATE [Concomitant]
     Active Substance: CODEINE PHOSPHATE
     Dosage: 60 MG, QD (AS NEEDED) START DATE: 03-JUN-2015
     Route: 048
  191. FLUCLOXACILLIN [Concomitant]
     Active Substance: FLUCLOXACILLIN
     Indication: Nail infection
     Dosage: 250 MILLIGRAM, TID(750 MG, START DATE: 03-JUN-2015
     Route: 048
     Dates: end: 20150610
  192. FLUCLOXACILLIN [Concomitant]
     Active Substance: FLUCLOXACILLIN
     Dosage: 750 MILLIGRAM, QD, START DATE: 03-JUN-2015
     Route: 048
     Dates: end: 20150610
  193. LOPERAMIDE [Concomitant]
     Active Substance: LOPERAMIDE
     Indication: Diarrhoea
     Dosage: 4 MILLIGRAM, PRN, START DATE: 14-MAY-2015
     Route: 048
     Dates: end: 20150904
  194. LOPERAMIDE [Concomitant]
     Active Substance: LOPERAMIDE
     Dosage: 4 MG, PRN(4 MG AS NEEDED)START DATE: 14-MAY-2015
     Route: 048
  195. CHLORHEXIDINE GLUCONATE [Concomitant]
     Active Substance: CHLORHEXIDINE GLUCONATE
     Indication: Mucosal inflammation
     Dosage: PRN 1 MOUTH WASH AS NEEDED
     Route: 048
     Dates: start: 20150514, end: 20150715
  196. CHLORPHENIRAMINE MALEATE [Concomitant]
     Active Substance: CHLORPHENIRAMINE MALEATE
     Indication: Rash
     Dosage: 5 MILLIGRAM, PRN, START DATE: 25-JUL-2015
     Route: 048
     Dates: end: 20151021
  197. HYDROCORTISONE [Concomitant]
     Active Substance: HYDROCORTISONE
     Indication: Rash
     Dosage: LOTION APPLICATION, START DATE: 25-JUL-2015
     Route: 061
     Dates: end: 20150802
  198. HYDROCORTISONE [Concomitant]
     Active Substance: HYDROCORTISONE
     Dosage: UNK( LOTION APPLICATION)
     Route: 061
  199. ANASTROZOLE [Concomitant]
     Active Substance: ANASTROZOLE
     Indication: Product used for unknown indication
     Dosage: UNK
     Route: 065
  200. ACETAMINOPHEN [Concomitant]
     Active Substance: ACETAMINOPHEN
     Indication: Headache
     Dosage: UNK
     Route: 058
     Dates: start: 20150506, end: 20150903

REACTIONS (30)
  - Seizure [Unknown]
  - Fatigue [Not Recovered/Not Resolved]
  - Diarrhoea [Recovered/Resolved]
  - Neuropathy peripheral [Not Recovered/Not Resolved]
  - Palpitations [Not Recovered/Not Resolved]
  - Neuralgia [Not Recovered/Not Resolved]
  - Poor peripheral circulation [Unknown]
  - Alopecia [Unknown]
  - Left ventricular dysfunction [Not Recovered/Not Resolved]
  - Nasopharyngitis [Recovered/Resolved]
  - Depressed mood [Not Recovered/Not Resolved]
  - Nail infection [Recovered/Resolved]
  - Mucosal inflammation [Unknown]
  - Lacrimation increased [Not Recovered/Not Resolved]
  - Vaginal discharge [Recovered/Resolved]
  - Abdominal pain [Unknown]
  - Muscle twitching [Unknown]
  - Hiccups [Recovered/Resolved]
  - Headache [Recovered/Resolved]
  - Rash [Recovered/Resolved]
  - Nausea [Recovered/Resolved]
  - Chest pain [Recovered/Resolved]
  - Constipation [Recovered/Resolved]
  - Dizziness [Unknown]
  - Muscle spasms [Unknown]
  - Urinary tract infection [Recovered/Resolved]
  - Weight decreased [Unknown]
  - Oropharyngeal pain [Recovered/Resolved]
  - Cough [Recovered/Resolved]
  - Nail disorder [Recovered/Resolved]

NARRATIVE: CASE EVENT DATE: 20150508
